FAERS Safety Report 5517559-3 (Version None)
Quarter: 2007Q4

REPORT INFORMATION
  Report Type: 
  Country: None (occurrence: None)
  Receive Date: 20071114
  Receipt Date: 20071102
  Transmission Date: 20080405
  Serious: Yes (Other)
  Sender: FDA-Public Use
  Company Number: US-SHR-US-2007-041568

PATIENT
  Age: 39 Year
  Sex: Female
  Weight: 69.8 kg

DRUGS (1)
  1. BETASERON [Suspect]
     Dosage: 8 MIU, EVERY 2D
     Route: 058
     Dates: start: 20070121, end: 20071001

REACTIONS (6)
  - BASEDOW'S DISEASE [None]
  - CONTUSION [None]
  - DEPRESSION [None]
  - IMPAIRED HEALING [None]
  - NUCLEAR MAGNETIC RESONANCE IMAGING ABNORMAL [None]
  - WEIGHT DECREASED [None]
